FAERS Safety Report 7643037-1 (Version None)
Quarter: 2011Q3

REPORT INFORMATION
  Report Type: 
  Country: None (occurrence: None)
  Receive Date: 20110728
  Receipt Date: 20110722
  Transmission Date: 20111222
  Serious: Yes (Death)
  Sender: FDA-Public Use
  Company Number: US-CELGENEUS-163-21880-11072619

PATIENT
  Sex: Male

DRUGS (9)
  1. TRAMADOL HCI [Concomitant]
     Route: 065
  2. ATENOLOL [Concomitant]
     Route: 065
  3. CADUET [Concomitant]
     Route: 065
  4. REVLIMID [Suspect]
     Dosage: 15 MILLIGRAM
     Route: 048
     Dates: start: 20100408
  5. DEXAMETHASONE [Concomitant]
     Route: 065
  6. FLOMAX [Concomitant]
     Route: 065
  7. ARICEPT [Concomitant]
     Route: 065
  8. PERCOCET [Concomitant]
     Route: 065
  9. METFORMIN HCL [Concomitant]
     Route: 065

REACTIONS (1)
  - DEATH [None]
